FAERS Safety Report 17973225 (Version 1)
Quarter: 2020Q3

REPORT INFORMATION
  Report Type: Spontaneous
  Country: DE (occurrence: DE)
  Receive Date: 20200702
  Receipt Date: 20200702
  Transmission Date: 20201103
  Serious: Yes (Death, Other)
  Sender: FDA-Public Use
  Company Number: NVSC2020DE184441

PATIENT
  Age: 39 Year
  Sex: Male

DRUGS (5)
  1. OXALIPLATIN. [Suspect]
     Active Substance: OXALIPLATIN
     Indication: TESTICULAR GERM CELL TUMOUR
     Dosage: UNK (SECOND?LINE CHEMOTHERAPY WITH 3 CYCLES)
     Route: 065
  2. ETOPOSIDE. [Suspect]
     Active Substance: ETOPOSIDE
     Indication: TESTICULAR GERM CELL TUMOUR
     Dosage: UNK (HIGH?DOSE)
     Route: 065
  3. GEMCITABINE. [Suspect]
     Active Substance: GEMCITABINE
     Indication: TESTICULAR GERM CELL TUMOUR
     Dosage: UNK (SECOND?LINE CHEMOTHERAPY WITH 3 CYCLES)
     Route: 065
  4. CARBOPLATIN. [Suspect]
     Active Substance: CARBOPLATIN
     Indication: TESTICULAR GERM CELL TUMOUR
     Dosage: UNK (HIGH?DOSE)
     Route: 065
  5. PACLITAXEL. [Suspect]
     Active Substance: PACLITAXEL
     Indication: TESTICULAR GERM CELL TUMOUR
     Dosage: UNK (SECOND?LINE CHEMOTHERAPY WITH 3 CYCLES)
     Route: 065

REACTIONS (3)
  - Testicular germ cell tumour [Fatal]
  - Product use in unapproved indication [Unknown]
  - Malignant neoplasm progression [Fatal]
